FAERS Safety Report 15138234 (Version 1)
Quarter: 2018Q3

REPORT INFORMATION
  Report Type: Spontaneous
  Country: ES (occurrence: ES)
  Receive Date: 20180713
  Receipt Date: 20180713
  Transmission Date: 20181010
  Serious: Yes (Hospitalization)
  Sender: FDA-Public Use
  Company Number: ES-ROCHE-2154141

PATIENT
  Age: 60 Year
  Sex: Male

DRUGS (2)
  1. COTELLIC [Suspect]
     Active Substance: COBIMETINIB
     Indication: SUPERFICIAL SPREADING MELANOMA STAGE IV
     Route: 048
     Dates: start: 20171214, end: 20180430
  2. ZELBORAF [Suspect]
     Active Substance: VEMURAFENIB
     Indication: SUPERFICIAL SPREADING MELANOMA STAGE IV
     Route: 048
     Dates: start: 20171214, end: 20180430

REACTIONS (1)
  - Pustular psoriasis [Recovered/Resolved]

NARRATIVE: CASE EVENT DATE: 20180420
